FAERS Safety Report 9172898 (Version 3)
Quarter: 2013Q2

REPORT INFORMATION
  Report Type: Report from Study
  Country: JP (occurrence: JP)
  Receive Date: 20130319
  Receipt Date: 20130430
  Transmission Date: 20140414
  Serious: Yes (Hospitalization)
  Sender: FDA-Public Use
  Company Number: JP-B.I. PHARMACEUTICALS,INC./RIDGEFIELD-2013-BI-07056NB

PATIENT
  Age: 82 Year
  Sex: Male
  Weight: 54 kg

DRUGS (5)
  1. PRAZAXA [Suspect]
     Indication: ATRIAL FIBRILLATION
     Dosage: 220 MG
     Route: 048
     Dates: start: 20120412, end: 20120905
  2. PRAZAXA [Suspect]
     Indication: PROPHYLAXIS
     Dosage: 150 MG
     Route: 048
     Dates: start: 20120906
  3. PRAZAXA [Suspect]
     Indication: PROPHYLAXIS
  4. ASPENON [Concomitant]
     Indication: ATRIAL FIBRILLATION
     Dosage: 40 MG
     Route: 048
  5. EPADEL S [Concomitant]
     Dosage: 1800 MG
     Route: 048
     Dates: start: 20080618

REACTIONS (4)
  - Loss of consciousness [Recovered/Resolved]
  - Fall [Recovered/Resolved]
  - Haemorrhage subcutaneous [Recovered/Resolved]
  - Renal impairment [Not Recovered/Not Resolved]
